FAERS Safety Report 10179648 (Version 1)
Quarter: 2014Q2

REPORT INFORMATION
  Report Type: Spontaneous
  Country: US (occurrence: None)
  Receive Date: 20140515
  Receipt Date: 20140515
  Transmission Date: 20141212
  Serious: Yes (Other)
  Sender: FDA-Public Use
  Company Number: 001731892A

PATIENT
  Age: 38 Year
  Sex: Male

DRUGS (12)
  1. PROACTIVE RENEWING CLEANSER [Suspect]
     Indication: ACNE
     Dosage: ONCE DAILY DERMAL ?
     Dates: start: 20140419
  2. PROACTIV REPAIRING TREATMENT [Suspect]
     Indication: ACNE
     Dosage: ONCE DAILY DERMAL
     Dates: start: 20140419
  3. PROACTIV ADVANCED DAILY OIL CONTROL [Suspect]
     Indication: ACNE
     Dosage: ONCE DAILY DERMAL
     Dates: start: 20140419
  4. PROACTIV OIL FREE MOISTURIZER WITH SPF 15 [Suspect]
     Indication: ACNE
     Dosage: ONCE DAILY DERMAL
     Dates: start: 20140419
  5. VALIUM 10MG/2ML [Concomitant]
  6. ALBUTEROL 4MG [Concomitant]
  7. BACLOFEN 10MG [Concomitant]
  8. PROPRANOLOL 80MG [Concomitant]
  9. ZOLOFT 50G [Concomitant]
  10. GEODON 60 MG [Concomitant]
  11. DEPAKOTE [Concomitant]
  12. MULTIVITAMIN [Concomitant]

REACTIONS (2)
  - Dyspnoea [None]
  - Convulsion [None]
